FAERS Safety Report 25651052 (Version 3)
Quarter: 2025Q3

REPORT INFORMATION
  Report Type: Spontaneous
  Country: US (occurrence: US)
  Receive Date: 20250806
  Receipt Date: 20250905
  Transmission Date: 20251020
  Serious: Yes (Other)
  Sender: BAUSCH AND LOMB
  Company Number: US-BAUSCHBL-2025BNL013481

PATIENT
  Age: 40 Year
  Sex: Female
  Weight: 50.8 kg

DRUGS (1)
  1. OPCON-A [Suspect]
     Active Substance: NAPHAZOLINE HYDROCHLORIDE\PHENIRAMINE MALEATE
     Indication: Routine health maintenance
     Dosage: 4 TIMES PER DAY
     Route: 065
     Dates: start: 20250725, end: 20250730

REACTIONS (4)
  - Cerebrovascular accident [Recovering/Resolving]
  - Drug hypersensitivity [Recovered/Resolved]
  - Mydriasis [Recovered/Resolved]
  - Impaired work ability [Recovered/Resolved]

NARRATIVE: CASE EVENT DATE: 20250730
